FAERS Safety Report 5730950-5 (Version None)
Quarter: 2008Q2

REPORT INFORMATION
  Report Type: 
  Country: None (occurrence: None)
  Receive Date: 20080502
  Receipt Date: 20080421
  Transmission Date: 20081010
  Serious: Yes (Other)
  Sender: FDA-Public Use
  Company Number: US-GDP-08403878

PATIENT
  Sex: Male

DRUGS (1)
  1. ORACEA [Suspect]
     Indication: ERYTHEMA
     Dosage: (40 MG QD ORAL)
     Route: 048
     Dates: start: 20080301, end: 20080401

REACTIONS (3)
  - KERATOCONJUNCTIVITIS SICCA [None]
  - RETINAL DETACHMENT [None]
  - RETINAL TEAR [None]
